FAERS Safety Report 14670660 (Version 1)
Quarter: 2018Q1

REPORT INFORMATION
  Report Type: Spontaneous
  Country: US (occurrence: US)
  Receive Date: 20180322
  Receipt Date: 20180322
  Transmission Date: 20180509
  Serious: No
  Sender: FDA-Public Use
  Company Number: US-MYLANLABS-2018M1013903

PATIENT
  Age: 74 Year
  Sex: Female
  Weight: 118 kg

DRUGS (1)
  1. TEMAZEPAM CAPSULES USP [Suspect]
     Active Substance: TEMAZEPAM
     Indication: INSOMNIA
     Dosage: 1 DF, UNK
     Route: 048
     Dates: start: 20180213, end: 20180215

REACTIONS (3)
  - Product taste abnormal [Unknown]
  - Counterfeit product administered [Unknown]
  - Drug ineffective [Recovered/Resolved]

NARRATIVE: CASE EVENT DATE: 20180213
